FAERS Safety Report 4400558-2 (Version None)
Quarter: 2004Q3

REPORT INFORMATION
  Report Type: 
  Country: None (occurrence: None)
  Receive Date: 20040716
  Receipt Date: 20040716
  Transmission Date: 20050211
  Serious: Yes (Hospitalization)
  Sender: FDA-Public Use
  Company Number: None

PATIENT
  Sex: Male
  Weight: 89.2 kg

DRUGS (2)
  1. ETOPOSIDE [Suspect]
     Indication: SMALL CELL LUNG CANCER STAGE UNSPECIFIED
     Dosage: 207 MG X 3 DAYS INTRAVENOUS
     Route: 042
     Dates: start: 20040630, end: 20040702
  2. CISPLATIN [Concomitant]

REACTIONS (1)
  - FEBRILE NEUTROPENIA [None]
